FAERS Safety Report 10173062 (Version 1)
Quarter: 2014Q2

REPORT INFORMATION
  Report Type: Spontaneous
  Country: US (occurrence: US)
  Receive Date: 20140515
  Receipt Date: 20140515
  Transmission Date: 20141212
  Serious: Yes (Hospitalization)
  Sender: FDA-Public Use
  Company Number: US-BAYER-2014-070987

PATIENT
  Age: 29 Year
  Sex: Female
  Weight: 57.14 kg

DRUGS (12)
  1. YASMIN [Suspect]
  2. YAZ [Suspect]
  3. BEYAZ [Suspect]
     Indication: CONTRACEPTION
  4. BENADRYL [Concomitant]
     Dosage: 50 MG, UNK
     Route: 042
  5. COGENTIN [Concomitant]
     Dosage: 2 MG, UNK
     Route: 042
  6. INAPSINE [Concomitant]
  7. MEFOXIN [Concomitant]
  8. ZOFRAN [Concomitant]
     Dosage: 4 MG, UNK
  9. TORADOL [Concomitant]
     Dosage: 30 MG, UNK
  10. DILAUDID [Concomitant]
     Dosage: 1 MG, UNK
  11. ULTRAM [Concomitant]
  12. PERCOCET [Concomitant]

REACTIONS (1)
  - Pulmonary embolism [None]
